FAERS Safety Report 7581312-X (Version None)
Quarter: 2011Q2

REPORT INFORMATION
  Report Type: 
  Country: None (occurrence: None)
  Receive Date: 20110629
  Receipt Date: 20110614
  Transmission Date: 20111010
  Serious: Yes (Life-Threatening, Hospitalization)
  Sender: FDA-Public Use
  Company Number: SE-ROCHE-775642

PATIENT

DRUGS (3)
  1. BEVACIZUMAB [Suspect]
     Dosage: LAST DOSE ON 15 APR 2011
     Route: 065
     Dates: start: 20110311
  2. CAPECITABINE [Suspect]
     Dosage: LAST DOSE ON 15 APR 2011
     Route: 065
     Dates: start: 20110311
  3. OXALIPLATIN [Suspect]
     Dosage: LAST DOSE ON 15 APR 2011
     Route: 065
     Dates: start: 20110311

REACTIONS (1)
  - RECTAL PERFORATION [None]
